FAERS Safety Report 4979144-1 (Version None)
Quarter: 2006Q2

REPORT INFORMATION
  Report Type: 
  Country: None (occurrence: None)
  Receive Date: 20060421
  Receipt Date: 20060412
  Transmission Date: 20061013
  Serious: Yes (Other)
  Sender: FDA-Public Use
  Company Number: GB-JNJFOC-20051204480

PATIENT
  Sex: Male

DRUGS (2)
  1. RETIN-A [Suspect]
     Indication: ACNE
     Route: 061
     Dates: start: 20050830, end: 20050901
  2. NICOTINAMIDE [Concomitant]

REACTIONS (2)
  - ERYTHEMA [None]
  - SKIN HYPOPIGMENTATION [None]
